FAERS Safety Report 26062454 (Version 2)
Quarter: 2025Q4

REPORT INFORMATION
  Report Type: Spontaneous
  Country: GB (occurrence: GB)
  Receive Date: 20251119
  Receipt Date: 20251128
  Transmission Date: 20260117
  Serious: Yes (Other)
  Sender: TEVA
  Company Number: GB-TEVA-VS-3393058

PATIENT
  Age: 29 Year
  Sex: Female

DRUGS (2)
  1. ARIPIPRAZOLE [Suspect]
     Active Substance: ARIPIPRAZOLE
     Indication: Tic
     Dosage: GRADUALLY TITRATED
     Route: 065
  2. SERTRALINE [Suspect]
     Active Substance: SERTRALINE HYDROCHLORIDE
     Indication: Anxiety
     Route: 065

REACTIONS (2)
  - Myopia [Recovered/Resolved]
  - Drug ineffective [Unknown]
